FAERS Safety Report 9628009 (Version 2)
Quarter: 2013Q4

REPORT INFORMATION
  Report Type: Report from Study
  Country: JP (occurrence: JP)
  Receive Date: 20131016
  Receipt Date: 20131031
  Transmission Date: 20140711
  Serious: Yes (Death, Hospitalization)
  Sender: FDA-Public Use
  Company Number: JP-009507513-1310JPN007219

PATIENT
  Age: 80 Year
  Sex: Female

DRUGS (8)
  1. BONALON BAG [Suspect]
     Indication: OSTEOPOROSIS
     Dosage: 900 MICROGRAM, PER 4 WEEKS
     Route: 041
     Dates: start: 20121005, end: 20130510
  2. BONALON [Suspect]
     Indication: OSTEOPOROSIS
     Dosage: 35 MG, QW
     Route: 048
     Dates: start: 20120621, end: 20120929
  3. EC DOPARL [Concomitant]
     Indication: PARKINSON^S DISEASE
     Dosage: 6 DF, QD
     Route: 048
     Dates: start: 20120517, end: 20130510
  4. REQUIP [Concomitant]
     Indication: PARKINSON^S DISEASE
     Dosage: 3 MG, QD
     Route: 048
     Dates: start: 20120517, end: 20130510
  5. MUCOSTA [Concomitant]
     Indication: GASTRIC ULCER
     Dosage: 300 MG, QD
     Route: 048
     Dates: start: 20100930, end: 20130510
  6. SELEGILINE HYDROCHLORIDE [Concomitant]
     Indication: PARKINSON^S DISEASE
     Dosage: 5.0 MG, QD
     Route: 048
     Dates: start: 20120517, end: 20130510
  7. FUROSEMIDE [Concomitant]
     Indication: HYPERTENSION
     Dosage: 10 MG, QD
     Route: 048
     Dates: start: 20120621, end: 20130510
  8. PARIET [Concomitant]
     Indication: GASTROOESOPHAGEAL REFLUX DISEASE
     Dosage: 10 MG, QD
     Route: 048
     Dates: start: 20100930, end: 20130510

REACTIONS (1)
  - Parkinson^s disease [Fatal]
